FAERS Safety Report 5704702-6 (Version None)
Quarter: 2008Q2

REPORT INFORMATION
  Report Type: 
  Country: None (occurrence: None)
  Receive Date: 20080414
  Receipt Date: 20080408
  Transmission Date: 20081010
  Serious: Yes (Death)
  Sender: FDA-Public Use
  Company Number: JP-SANOFI-SYNTHELABO-F01200800505

PATIENT
  Sex: Female
  Weight: 41 kg

DRUGS (8)
  1. GLYSENNID [Concomitant]
     Dosage: 36 MG
     Route: 048
     Dates: start: 20040203, end: 20070904
  2. SELBEX [Concomitant]
     Dosage: 150 MG
     Route: 048
     Dates: start: 20031222, end: 20070904
  3. SEVEN EP [Concomitant]
     Dosage: 3 CAPSULES
     Route: 048
     Dates: start: 20040721, end: 20070904
  4. ALLEGRA [Concomitant]
     Dosage: 120 MG
     Route: 048
     Dates: start: 20051221, end: 20070904
  5. FERROMIA [Concomitant]
     Dosage: 100 MG
     Route: 048
     Dates: start: 20060331, end: 20070904
  6. AMLODIN [Concomitant]
     Indication: HYPERTENSION
     Dosage: 5 MG
     Route: 048
     Dates: start: 20031112, end: 20070904
  7. BLOPRESS [Concomitant]
     Indication: HYPERTENSION
     Dosage: 8 MG
     Route: 048
     Dates: start: 20031030, end: 20070904
  8. CLOPIDOGREL [Suspect]
     Indication: CEREBROVASCULAR DISORDER
     Route: 048
     Dates: start: 20070821, end: 20070904

REACTIONS (1)
  - MESENTERIC OCCLUSION [None]
